FAERS Safety Report 4834381-1 (Version None)
Quarter: 2005Q4

REPORT INFORMATION
  Report Type: 
  Country: None (occurrence: None)
  Receive Date: 20051114
  Receipt Date: 20051031
  Transmission Date: 20060501
  Serious: Yes (Other)
  Sender: FDA-Public Use
  Company Number: 2005149157

PATIENT
  Sex: Male
  Weight: 68.0396 kg

DRUGS (1)
  1. BENADRYL [Suspect]
     Indication: RASH PRURITIC
     Dosage: ORAL
     Route: 048
     Dates: start: 20050601

REACTIONS (2)
  - DISORIENTATION [None]
  - HALLUCINATION [None]
